FAERS Safety Report 10072064 (Version 1)
Quarter: 2014Q2

REPORT INFORMATION
  Report Type: Spontaneous
  Country: US (occurrence: None)
  Receive Date: 20140410
  Receipt Date: 20140410
  Transmission Date: 20141212
  Serious: Yes (Disabling, Other)
  Sender: FDA-Public Use
  Company Number: None

PATIENT
  Age: 65 Day
  Sex: Male
  Weight: 117.03 kg

DRUGS (7)
  1. DULOXETINE HCL [Suspect]
     Indication: PAIN
     Dosage: 20 MG 1 EVENING ORAL
     Route: 048
     Dates: start: 20110101, end: 20140407
  2. MOTRIN [Concomitant]
  3. LISINOPRIL [Concomitant]
  4. VALUIM [Concomitant]
  5. LISINOPRIL [Concomitant]
  6. MOTRIN [Concomitant]
  7. DIAZEPAM [Concomitant]

REACTIONS (8)
  - Seizure like phenomena [None]
  - Muscle contractions involuntary [None]
  - Hypoaesthesia [None]
  - Screaming [None]
  - Anger [None]
  - Insomnia [None]
  - Skin lesion [None]
  - Abnormal behaviour [None]
